FAERS Safety Report 9834195 (Version 4)
Quarter: 2014Q1

REPORT INFORMATION
  Report Type: Spontaneous
  Country: FI (occurrence: FI)
  Receive Date: 20140122
  Receipt Date: 20140217
  Transmission Date: 20141002
  Serious: Yes (Other)
  Sender: FDA-Public Use
  Company Number: FI-ASTELLAS-2013EU010711

PATIENT
  Sex: Female

DRUGS (1)
  1. PROTOPIC [Suspect]
     Indication: EXPOSURE VIA FATHER
     Dosage: UNK
     Route: 065
     Dates: start: 2013

REACTIONS (2)
  - Foetal death [Unknown]
  - Maternal exposure before pregnancy [Unknown]
